FAERS Safety Report 12267185 (Version 5)
Quarter: 2016Q2

REPORT INFORMATION
  Report Type: Spontaneous
  Country: JP (occurrence: JP)
  Receive Date: 20160414
  Receipt Date: 20160606
  Transmission Date: 20160815
  Serious: Yes (Hospitalization, Other)
  Sender: FDA-Public Use
  Company Number: JP-MDT-ADR-2016-00653

PATIENT
  Age: 14 Year
  Sex: Male
  Weight: 29 kg

DRUGS (2)
  1. GABALON [Suspect]
     Active Substance: BACLOFEN
     Route: 037
     Dates: start: 20151204
  2. GABALON [Suspect]
     Active Substance: BACLOFEN
     Route: 037
     Dates: start: 20150323

REACTIONS (26)
  - Secretion discharge [Unknown]
  - Blood alkaline phosphatase increased [Unknown]
  - Basophil percentage decreased [Unknown]
  - Blood potassium decreased [Unknown]
  - Urine output decreased [Unknown]
  - Insomnia [Unknown]
  - Cough [Unknown]
  - Blood lactate dehydrogenase increased [Unknown]
  - Pneumonia [Recovering/Resolving]
  - Atelectasis [Unknown]
  - Neutrophil percentage increased [Unknown]
  - Loss of consciousness [Unknown]
  - Lymphocyte percentage decreased [Unknown]
  - Blood albumin decreased [Unknown]
  - Haematocrit decreased [Unknown]
  - Pyrexia [Unknown]
  - Blood urea decreased [Unknown]
  - Oxygen saturation decreased [Unknown]
  - Sputum retention [Unknown]
  - C-reactive protein increased [Unknown]
  - Alanine aminotransferase increased [Unknown]
  - Aspartate aminotransferase increased [Unknown]
  - Influenza [Recovering/Resolving]
  - Blood creatinine decreased [Unknown]
  - Blood sodium decreased [Unknown]
  - Protein total decreased [Unknown]

NARRATIVE: CASE EVENT DATE: 20130302
